FAERS Safety Report 7176825-9 (Version None)
Quarter: 2010Q4

REPORT INFORMATION
  Report Type: 
  Country: None (occurrence: None)
  Receive Date: 20101216
  Receipt Date: 20101216
  Transmission Date: 20110411
  Serious: No
  Sender: FDA-Public Use
  Company Number: None

PATIENT
  Sex: Male
  Weight: 112.9457 kg

DRUGS (1)
  1. NICOTINE [Suspect]
     Indication: SMOKING CESSATION THERAPY
     Dosage: 21 MG/DAY ONE PATCH DAILY TRANSDERMAL
     Route: 062
     Dates: start: 20101207, end: 20101215

REACTIONS (3)
  - EYE SWELLING [None]
  - FACE OEDEMA [None]
  - RASH ERYTHEMATOUS [None]
